FAERS Safety Report 6883288-7 (Version None)
Quarter: 2010Q3

REPORT INFORMATION
  Report Type: 
  Country: None (occurrence: None)
  Receive Date: 20100727
  Receipt Date: 20070716
  Transmission Date: 20110219
  Serious: No
  Sender: FDA-Public Use
  Company Number: US-PFIZER INC-2007038796

PATIENT
  Sex: Female
  Weight: 74.84 kg

DRUGS (5)
  1. CELEBREX [Suspect]
     Indication: POSTOPERATIVE CARE
     Route: 048
     Dates: start: 20070503, end: 20070501
  2. BENADRYL [Suspect]
     Indication: RASH
     Dates: start: 20070501
  3. BENADRYL [Suspect]
     Indication: PRURITUS
  4. DEMEROL [Suspect]
     Indication: POSTOPERATIVE CARE
  5. CLINDAMYCIN [Suspect]
     Indication: POSTOPERATIVE CARE
     Dates: start: 20070504

REACTIONS (3)
  - DRUG INEFFECTIVE [None]
  - PRURITUS [None]
  - RASH [None]
